FAERS Safety Report 24066754 (Version 2)
Quarter: 2024Q3

REPORT INFORMATION
  Report Type: Report from Study
  Country: GB (occurrence: GB)
  Receive Date: 20240709
  Receipt Date: 20240712
  Transmission Date: 20241017
  Serious: No
  Sender: SANDOZ
  Company Number: GB-SANDOZ-SDZ2023GB067556

PATIENT
  Sex: Male

DRUGS (2)
  1. HYRIMOZ [Suspect]
     Active Substance: ADALIMUMAB-ADAZ
     Indication: Crohn^s disease
     Dosage: 40 MG, QW (40MG/0.4ML SOLUTION FOR INJECTION PRE-FILLED PEN)
     Route: 058
     Dates: start: 20231208
  2. ADALIMUMAB [Concomitant]
     Active Substance: ADALIMUMAB\ISOPROPYL ALCOHOL
     Indication: Product used for unknown indication
     Dosage: UNK
     Route: 065

REACTIONS (7)
  - Dermal cyst [Recovered/Resolved]
  - Pustule [Recovered/Resolved]
  - Scab [Recovered/Resolved]
  - Eye disorder [Unknown]
  - Dermal cyst [Not Recovered/Not Resolved]
  - Malaise [Unknown]
  - Injection site pain [Unknown]
